FAERS Safety Report 9886266 (Version 1)
Quarter: 2014Q1

REPORT INFORMATION
  Report Type: Spontaneous
  Country: US (occurrence: US)
  Receive Date: 20140210
  Receipt Date: 20140210
  Transmission Date: 20141002
  Serious: Yes (Death)
  Sender: FDA-Public Use
  Company Number: US-ASTRAZENECA-2014SE08669

PATIENT
  Age: 206 Day
  Sex: Female

DRUGS (7)
  1. SYNAGIS [Suspect]
     Dosage: DOSE 1, 0.78 ML GIVEN
     Route: 030
     Dates: start: 20131118
  2. SYNAGIS [Suspect]
     Dosage: DOSE 2, 0.89 ML GIVEN
     Route: 030
     Dates: start: 20131219
  3. POLYVISOL WITH IRON [Concomitant]
  4. PEDIARIX [Concomitant]
  5. PREVNAR [Concomitant]
  6. ROTATEQ [Concomitant]
  7. FLU SHOT [Concomitant]

REACTIONS (1)
  - Death [Fatal]
